FAERS Safety Report 23128520 (Version 3)
Quarter: 2025Q1

REPORT INFORMATION
  Report Type: Spontaneous
  Country: US (occurrence: US)
  Receive Date: 20231031
  Receipt Date: 20250303
  Transmission Date: 20250409
  Serious: Yes (Other)
  Sender: SANOFI AVENTIS
  Company Number: US-SA-2023SA332380

PATIENT
  Age: 64 Year
  Sex: Female

DRUGS (1)
  1. DUPIXENT [Suspect]
     Active Substance: DUPILUMAB
     Indication: Asthma
     Dosage: 300 MG, QOW
     Route: 058

REACTIONS (5)
  - Syncope [Unknown]
  - Dyspnoea [Unknown]
  - Alopecia [Unknown]
  - COVID-19 [Unknown]
  - Urticaria [Unknown]

NARRATIVE: CASE EVENT DATE: 20250201
